FAERS Safety Report 11192418 (Version 1)
Quarter: 2015Q2

REPORT INFORMATION
  Report Type: Spontaneous
  Country: IT (occurrence: IT)
  Receive Date: 20150616
  Receipt Date: 20150616
  Transmission Date: 20150821
  Serious: Yes (Other)
  Sender: FDA-Public Use
  Company Number: IT-PFIZER INC-2015196351

PATIENT
  Age: 63 Year
  Sex: Male

DRUGS (14)
  1. CARDIOASPIRIN [Concomitant]
     Active Substance: ASPIRIN
     Route: 048
  2. HUMALOG [Concomitant]
     Active Substance: INSULIN LISPRO
     Dosage: 31 (7+12+12) IU, UNK
     Route: 058
  3. LANTUS [Concomitant]
     Active Substance: INSULIN GLARGINE
     Dosage: 23 IU, UNK
     Route: 058
  4. KANRENOL [Concomitant]
     Active Substance: CANRENOATE POTASSIUM
     Dosage: 0.25 DF, UNK
     Route: 048
  5. TEGRETOL [Concomitant]
     Active Substance: CARBAMAZEPINE
     Route: 048
  6. EFIENT [Concomitant]
     Active Substance: PRASUGREL HYDROCHLORIDE
     Route: 048
  7. CONTRAMAL [Concomitant]
     Active Substance: TRAMADOL HYDROCHLORIDE
     Route: 048
  8. LANSOPRAZOLE. [Concomitant]
     Active Substance: LANSOPRAZOLE
     Dosage: 30 MG, UNK
     Route: 048
  9. CONGESCOR [Concomitant]
     Active Substance: BISOPROLOL
     Route: 048
  10. GABAPENTIN. [Concomitant]
     Active Substance: GABAPENTIN
     Dosage: 600 MG (300 MG X2)
     Route: 048
  11. RAMIPRIL. [Concomitant]
     Active Substance: RAMIPRIL
     Dosage: 2.5 MG, UNK
     Route: 048
  12. TOTALIP [Suspect]
     Active Substance: ATORVASTATIN
     Indication: HYPERCHOLESTEROLAEMIA
     Dosage: 1 DF, DAILY
     Route: 048
     Dates: start: 20150101, end: 20150503
  13. LASIX [Concomitant]
     Active Substance: FUROSEMIDE
     Dosage: 1 DF, UNK
     Route: 048
  14. PROZIN /00011902/ [Concomitant]
     Active Substance: CHLORPROMAZINE HYDROCHLORIDE
     Route: 048

REACTIONS (2)
  - Myoclonus [Recovering/Resolving]
  - Muscle spasms [Recovering/Resolving]

NARRATIVE: CASE EVENT DATE: 20150503
